FAERS Safety Report 6600876-3 (Version None)
Quarter: 2010Q1

REPORT INFORMATION
  Report Type: 
  Country: None (occurrence: None)
  Receive Date: 20100225
  Receipt Date: 20100105
  Transmission Date: 20100710
  Serious: No
  Sender: FDA-Public Use
  Company Number: A0837525A

PATIENT
  Sex: Female

DRUGS (1)
  1. LAMICTAL CD [Suspect]
     Dosage: 75MG UNKNOWN
     Route: 065

REACTIONS (4)
  - BREAST TENDERNESS [None]
  - DYSMENORRHOEA [None]
  - ILL-DEFINED DISORDER [None]
  - PREMENSTRUAL SYNDROME [None]
